FAERS Safety Report 4861214-X (Version None)
Quarter: 2005Q4

REPORT INFORMATION
  Report Type: 
  Country: None (occurrence: None)
  Receive Date: 20051216
  Receipt Date: 20051129
  Transmission Date: 20060501
  Serious: Yes (Hospitalization, Other)
  Sender: FDA-Public Use
  Company Number: 200514095GDS

PATIENT
  Age: 21 Year
  Sex: Female
  Weight: 69.5 kg

DRUGS (3)
  1. CLOTRIMAZOLE [Suspect]
     Indication: VAGINAL INFECTION
     Dosage: 0.5 G, TOTAL DAILY, VAGINAL
     Route: 067
     Dates: start: 20051121
  2. DEXAMETHASONE [Concomitant]
  3. CALCIUM GLUCONATE [Concomitant]

REACTIONS (8)
  - ABORTION INDUCED [None]
  - ANAPHYLACTIC REACTION [None]
  - CHEST PAIN [None]
  - DRUG EXPOSURE DURING PREGNANCY [None]
  - INTRA-UTERINE DEATH [None]
  - PAIN [None]
  - PYREXIA [None]
  - RASH [None]
